FAERS Safety Report 12493880 (Version 7)
Quarter: 2020Q4

REPORT INFORMATION
  Report Type: Spontaneous
  Country: US (occurrence: US)
  Receive Date: 20160623
  Receipt Date: 20201216
  Transmission Date: 20210113
  Serious: Yes (Hospitalization, Other)
  Sender: FDA-Public Use
  Company Number: US-ELI_LILLY_AND_COMPANY-US201606006479

PATIENT
  Age: 75 Year
  Sex: Male

DRUGS (16)
  1. HUMULIN N [Suspect]
     Active Substance: INSULIN HUMAN
     Dosage: 5 U, DAILY
     Route: 065
  2. HUMULIN N [Suspect]
     Active Substance: INSULIN HUMAN
     Dosage: UNK UNK, UNKNOWN
     Route: 058
  3. HUMULIN R [Suspect]
     Active Substance: INSULIN HUMAN
     Indication: TYPE 1 DIABETES MELLITUS
     Dosage: 40 U, DAILY
     Route: 065
     Dates: start: 195705
  4. HUMULIN R [Suspect]
     Active Substance: INSULIN HUMAN
     Dosage: 40 U, DAILY
     Route: 065
  5. HUMULIN R [Suspect]
     Active Substance: INSULIN HUMAN
     Dosage: 30 U, EACH MORNING
     Route: 058
  6. HUMULIN N [Suspect]
     Active Substance: INSULIN HUMAN
     Dosage: 8 U, EACH MORNING
     Route: 058
  7. HUMULIN N [Suspect]
     Active Substance: INSULIN HUMAN
     Dosage: 6 U, DAILY
     Route: 065
  8. HUMULIN R [Suspect]
     Active Substance: INSULIN HUMAN
     Dosage: UNK UNK, UNKNOWN
     Route: 058
  9. HUMULIN N [Suspect]
     Active Substance: INSULIN HUMAN
     Indication: TYPE 1 DIABETES MELLITUS
     Dosage: 5 U, QD
     Route: 065
     Dates: start: 195705
  10. HUMULIN R [Suspect]
     Active Substance: INSULIN HUMAN
     Dosage: 30 U, DAILY
     Route: 058
  11. NOVOLIN R [Suspect]
     Active Substance: INSULIN HUMAN
     Indication: PRODUCT USED FOR UNKNOWN INDICATION
     Dosage: UNK UNK, UNKNOWN
     Route: 065
  12. HUMULIN R [Suspect]
     Active Substance: INSULIN HUMAN
     Dosage: 40 U, DAILY
     Route: 065
  13. HUMULIN N [Suspect]
     Active Substance: INSULIN HUMAN
     Dosage: 5 U, DAILY
     Route: 065
  14. HUMULIN N [Suspect]
     Active Substance: INSULIN HUMAN
     Dosage: 8 U, DAILY
     Route: 058
  15. HUMULIN N [Suspect]
     Active Substance: INSULIN HUMAN
     Dosage: UNK UNK, UNKNOWN
     Route: 058
  16. HUMULIN R [Suspect]
     Active Substance: INSULIN HUMAN
     Dosage: UNK UNK, UNKNOWN

REACTIONS (25)
  - Blood glucose increased [Unknown]
  - Vertigo [Unknown]
  - Spinal compression fracture [Unknown]
  - Drug ineffective [Unknown]
  - Blood glucose decreased [Unknown]
  - Abdominal discomfort [Unknown]
  - Cardiac disorder [Unknown]
  - Visual impairment [Not Recovered/Not Resolved]
  - Arthritis [Unknown]
  - Ocular discomfort [Unknown]
  - Arthralgia [Unknown]
  - Diabetic retinal oedema [Unknown]
  - Carpal tunnel syndrome [Unknown]
  - Back pain [Unknown]
  - Sciatica [Unknown]
  - Retinopathy [Not Recovered/Not Resolved]
  - Visual acuity reduced [Not Recovered/Not Resolved]
  - Diabetes mellitus inadequate control [Unknown]
  - Incorrect product administration duration [Unknown]
  - Expired product administered [Unknown]
  - Finger deformity [Not Recovered/Not Resolved]
  - Blood glucose increased [Unknown]
  - Cerebral disorder [Unknown]
  - Road traffic accident [Unknown]
  - Blood glucose decreased [Unknown]

NARRATIVE: CASE EVENT DATE: 1991
